FAERS Safety Report 7632951-9 (Version None)
Quarter: 2011Q3

REPORT INFORMATION
  Report Type: 
  Country: None (occurrence: None)
  Receive Date: 20110725
  Receipt Date: 20110714
  Transmission Date: 20111222
  Serious: Yes (Hospitalization, Other)
  Sender: FDA-Public Use
  Company Number: PHFR2011GB02191

PATIENT
  Sex: Male

DRUGS (3)
  1. CLOZAPINE [Suspect]
     Dosage: 125 MG/MANE AND 450 MG/NOCTE
     Route: 048
     Dates: start: 20100824
  2. CLOZAPINE [Suspect]
     Indication: SCHIZOPHRENIA
     Route: 048
     Dates: start: 19980122
  3. LANSOPRAZOLE [Concomitant]
     Dosage: 30 MG, DAILY
     Route: 048
     Dates: start: 20100525

REACTIONS (7)
  - ELECTROCARDIOGRAM ABNORMAL [None]
  - ERECTILE DYSFUNCTION [None]
  - SINUS TACHYCARDIA [None]
  - ELECTROCARDIOGRAM T WAVE ABNORMAL [None]
  - ELECTROCARDIOGRAM QT PROLONGED [None]
  - HEART RATE INCREASED [None]
  - CONDUCTION DISORDER [None]
